FAERS Safety Report 5220136-5 (Version None)
Quarter: 2007Q1

REPORT INFORMATION
  Report Type: 
  Country: None (occurrence: None)
  Receive Date: 20061121
  Receipt Date: 20060823
  Transmission Date: 20070707
  Serious: No
  Sender: FDA-Public Use
  Company Number: TPA2006A01419

PATIENT
  Age: 50 Year
  Sex: Female
  Weight: 90.7194 kg

DRUGS (6)
  1. ROZEREM [Suspect]
     Indication: INSOMNIA
     Dosage: 8 MG, HS PER ORAL
     Route: 048
     Dates: start: 20060822
  2. SEROQUEL (QUETIAPINE FUMARATE) (50 GIGABECQUEREL (S) ) [Concomitant]
  3. LEVOTHYROXINE (LEVOTHYROXINE) (0.2 MILLIGRAM) [Concomitant]
  4. DIOVAN (VALSARTAN) (160 MILLIGRAM) [Concomitant]
  5. LEXAPRO (ESCITALOPRAM OXALATE) (20 MILLIGRAM) [Concomitant]
  6. VALTREX (VALACICLOVIR HYDROCHOLRIDE) (1 GRAM) [Concomitant]

REACTIONS (2)
  - MIDDLE INSOMNIA [None]
  - POOR QUALITY SLEEP [None]
